FAERS Safety Report 7390133-2 (Version None)
Quarter: 2011Q2

REPORT INFORMATION
  Report Type: 
  Country: None (occurrence: None)
  Receive Date: 20110401
  Receipt Date: 20110328
  Transmission Date: 20111010
  Serious: Yes (Death, Life-Threatening)
  Sender: FDA-Public Use
  Company Number: CZ-CELGENEUS-217-C5013-11021593

PATIENT
  Age: 77 Year
  Sex: Female

DRUGS (24)
  1. PREDNISONE [Suspect]
     Indication: MULTIPLE MYELOMA
     Route: 065
     Dates: start: 20080709, end: 20090221
  2. STILNOX [Concomitant]
     Indication: INSOMNIA
     Route: 048
     Dates: start: 20080929
  3. SERETIDE [Concomitant]
     Route: 055
     Dates: start: 20050101
  4. GANATON [Concomitant]
     Indication: CONSTIPATION
     Route: 048
     Dates: start: 20080910
  5. COXTRAL [Concomitant]
     Indication: BONE PAIN
     Route: 048
     Dates: start: 20080609
  6. TRITACE [Concomitant]
     Route: 048
     Dates: start: 20080723
  7. LETROX [Concomitant]
     Indication: HYPOTHYROIDISM
     Route: 048
  8. FLONDAN [Concomitant]
     Route: 048
     Dates: start: 20080901
  9. NEUPOGEN [Concomitant]
     Route: 058
     Dates: start: 20090128, end: 20090130
  10. ARANESP [Concomitant]
     Indication: ANAEMIA
     Route: 058
     Dates: start: 20091224
  11. LENALIDOMIDE [Suspect]
     Indication: MULTIPLE MYELOMA
     Route: 048
     Dates: start: 20091125, end: 20100112
  12. GODASAL [Concomitant]
     Indication: THROMBOSIS PROPHYLAXIS
     Route: 048
     Dates: start: 20080716
  13. NEUPOGEN [Concomitant]
     Indication: NEUTROPENIA
     Route: 058
     Dates: start: 20081203, end: 20081207
  14. EUPHYLLIN [Concomitant]
     Route: 048
  15. LOREM [Concomitant]
     Route: 048
     Dates: start: 20080910
  16. PANGDOL [Concomitant]
     Indication: CONSTIPATION
     Route: 048
     Dates: start: 20081006
  17. PLACEBO FOR CC-5013 [Suspect]
     Indication: MULTIPLE MYELOMA
     Route: 048
     Dates: start: 20080709, end: 20091115
  18. NEUPOGEN [Concomitant]
     Route: 058
     Dates: start: 20100217
  19. MELPHALAN [Suspect]
     Indication: MULTIPLE MYELOMA
     Route: 065
     Dates: start: 20080709, end: 20090221
  20. ZOMETA [Concomitant]
     Route: 048
     Dates: start: 20080101, end: 20100217
  21. HELICID [Concomitant]
     Indication: PROPHYLAXIS
     Route: 048
     Dates: start: 20050501
  22. NEUPOGEN [Concomitant]
     Route: 058
     Dates: start: 20091223, end: 20100203
  23. BETALOC [Concomitant]
     Route: 048
     Dates: start: 20040101
  24. DIGOXIN [Concomitant]
     Route: 048
     Dates: start: 19750101

REACTIONS (2)
  - MYELODYSPLASTIC SYNDROME [None]
  - SEPSIS [None]
